FAERS Safety Report 5143302-6 (Version None)
Quarter: 2006Q4

REPORT INFORMATION
  Report Type: 
  Country: None (occurrence: None)
  Receive Date: 20061103
  Receipt Date: 20060928
  Transmission Date: 20070319
  Serious: Yes (Hospitalization, Disabling)
  Sender: FDA-Public Use
  Company Number: US-ROCHE-465471

PATIENT
  Age: 86 Year
  Sex: Male

DRUGS (1)
  1. BONIVA [Suspect]
     Indication: OSTEOPOROSIS
     Dosage: THE INDICATION WAS REPORTED AS ^COMPRESSION FRACTURE SPINE, OSTEOPOROSIS^.
     Route: 048
     Dates: start: 20060901, end: 20060901

REACTIONS (9)
  - ASTHENIA [None]
  - CHILLS [None]
  - DIARRHOEA [None]
  - DYSPHAGIA [None]
  - NAUSEA [None]
  - PNEUMONIA ASPIRATION [None]
  - PYREXIA [None]
  - RASH [None]
  - VOMITING [None]
